FAERS Safety Report 18910336 (Version 1)
Quarter: 2021Q1

REPORT INFORMATION
  Report Type: Spontaneous
  Country: US (occurrence: US)
  Receive Date: 20210218
  Receipt Date: 20210218
  Transmission Date: 20210420
  Serious: Yes (Other)
  Sender: FDA-Public Use
  Company Number: US-GLAXOSMITHKLINE-US2021GSK027447

PATIENT
  Sex: Female

DRUGS (4)
  1. RANITIDINE. [Suspect]
     Active Substance: RANITIDINE
     Dosage: 300 MG, PLAINTIFF WILL SUPPLEMENT
     Route: 065
     Dates: start: 201001, end: 201806
  2. ZANTAC [Suspect]
     Active Substance: RANITIDINE HYDROCHLORIDE
     Dosage: PLAINTIFF WILL SUPPLEMENT
     Route: 065
     Dates: start: 201001, end: 201806
  3. RANITIDINE CAPSULE [Suspect]
     Active Substance: RANITIDINE
     Dosage: PLAINTIFF WILL SUPPLEMENT
     Route: 065
     Dates: start: 201001, end: 201806
  4. RANITIDINE. [Suspect]
     Active Substance: RANITIDINE
     Dosage: 300 MG,PLAINTIFF WILL SUPPLEMENT
     Route: 065
     Dates: start: 201001, end: 201806

REACTIONS (2)
  - Hepatic cancer [Unknown]
  - Colorectal cancer [Unknown]
